FAERS Safety Report 6165275-X (Version None)
Quarter: 2009Q2

REPORT INFORMATION
  Report Type: 
  Country: None (occurrence: None)
  Receive Date: 20090423
  Receipt Date: 20090416
  Transmission Date: 20091009
  Serious: Yes (Hospitalization)
  Sender: FDA-Public Use
  Company Number: B0555804A

PATIENT
  Age: 25 Year
  Sex: Female

DRUGS (2)
  1. LAMICTIN [Suspect]
     Indication: BIPOLAR DISORDER
     Dosage: 12.5MG PER DAY
     Route: 065
  2. ARCOXIA [Concomitant]

REACTIONS (4)
  - EYE IRRITATION [None]
  - OROPHARYNGEAL PAIN [None]
  - PRURITUS [None]
  - STEVENS-JOHNSON SYNDROME [None]
